FAERS Safety Report 8620801-3 (Version None)
Quarter: 2012Q3

REPORT INFORMATION
  Report Type: 
  Country: None (occurrence: None)
  Receive Date: 20120824
  Receipt Date: 20120820
  Transmission Date: 20120928
  Serious: Yes (Death)
  Sender: FDA-Public Use
  Company Number: US-ROCHE-1102785

PATIENT
  Sex: Female
  Weight: 66.738 kg

DRUGS (6)
  1. ABRAXANE [Concomitant]
     Indication: METASTATIC UTERINE CANCER
     Route: 042
     Dates: start: 20111107, end: 20120213
  2. AVASTIN [Suspect]
     Indication: METASTATIC UTERINE CANCER
     Dates: start: 20110321, end: 20110623
  3. TAXOL [Concomitant]
     Indication: METASTATIC UTERINE CANCER
     Dosage: 75 MG/M2
     Route: 042
     Dates: start: 20100114, end: 20100501
  4. DOXIL [Concomitant]
     Indication: METASTATIC UTERINE CANCER
     Route: 042
     Dates: start: 20110321, end: 20110623
  5. CARBOPLATIN [Concomitant]
     Indication: METASTATIC UTERINE CANCER
     Dosage: AUC 6
     Route: 042
     Dates: start: 20100114, end: 20100501
  6. AVASTIN [Suspect]
     Route: 042
     Dates: start: 20111107, end: 20120223

REACTIONS (1)
  - INTESTINAL OBSTRUCTION [None]
